FAERS Safety Report 12240128 (Version 2)
Quarter: 2017Q1

REPORT INFORMATION
  Report Type: Spontaneous
  Country: US (occurrence: US)
  Receive Date: 20160405
  Receipt Date: 20170215
  Transmission Date: 20170428
  Serious: Yes (Hospitalization, Other)
  Sender: FDA-Public Use
  Company Number: US-BAUSCH-BL-2016-007921

PATIENT
  Age: 61 Year
  Sex: Male

DRUGS (4)
  1. XIFAXAN [Suspect]
     Active Substance: RIFAXIMIN
     Indication: CIRRHOSIS ALCOHOLIC
     Route: 048
     Dates: start: 201211
  2. LACTULOSE. [Concomitant]
     Active Substance: LACTULOSE
     Indication: PRODUCT USED FOR UNKNOWN INDICATION
     Dosage: 10 GM/15 ML
     Dates: start: 20120904
  3. XIFAXAN [Suspect]
     Active Substance: RIFAXIMIN
     Indication: HEPATIC ENCEPHALOPATHY
     Route: 048
  4. TRAMADOL. [Suspect]
     Active Substance: TRAMADOL
     Indication: FLANK PAIN
     Route: 065

REACTIONS (11)
  - Inguinal hernia [Unknown]
  - Cholelithiasis [Unknown]
  - Neuralgia [Recovering/Resolving]
  - Diverticulum [Unknown]
  - Cerebrovascular accident [Unknown]
  - Nephrolithiasis [Unknown]
  - Portal shunt [Unknown]
  - Flank pain [Not Recovered/Not Resolved]
  - Hepatic cyst [Unknown]
  - Drug ineffective [Unknown]
  - Abdominal pain upper [Not Recovered/Not Resolved]

NARRATIVE: CASE EVENT DATE: 201512
